FAERS Safety Report 6599797-4 (Version None)
Quarter: 2010Q1

REPORT INFORMATION
  Report Type: 
  Country: None (occurrence: None)
  Receive Date: 20100217
  Receipt Date: 20100202
  Transmission Date: 20100710
  Serious: Yes (Death)
  Sender: FDA-Public Use
  Company Number: 006058

PATIENT
  Sex: 0

DRUGS (1)
  1. LACOSAMIDE [Suspect]
     Indication: CONVULSION

REACTIONS (2)
  - CARDIAC ARREST [None]
  - CONVULSION [None]
